FAERS Safety Report 6269147-1 (Version None)
Quarter: 2009Q3

REPORT INFORMATION
  Report Type: 
  Country: None (occurrence: None)
  Receive Date: 20090713
  Receipt Date: 20090629
  Transmission Date: 20100115
  Serious: Yes (Hospitalization, Other)
  Sender: FDA-Public Use
  Company Number: DE-1169838

PATIENT
  Age: 63 Year
  Sex: Male

DRUGS (1)
  1. FLUORESCEIN SODIUM [Suspect]
     Dosage: 5 ML
     Route: 041
     Dates: start: 20090416, end: 20090416

REACTIONS (3)
  - APNOEA [None]
  - HYPERSENSITIVITY [None]
  - SYNCOPE [None]
